FAERS Safety Report 4877277-1 (Version None)
Quarter: 2006Q1

REPORT INFORMATION
  Report Type: 
  Country: None (occurrence: None)
  Receive Date: 20060109
  Receipt Date: 20051227
  Transmission Date: 20060701
  Serious: Yes (Death, Hospitalization)
  Sender: FDA-Public Use
  Company Number: 2005-BP-21834RO

PATIENT
  Age: 71 Year
  Sex: Male

DRUGS (9)
  1. METHOTREXATE [Suspect]
     Dosage: 10 MG PER WEEK (NR, 1 IN 1 WK), PO
     Route: 048
  2. PREDNISOLONE [Concomitant]
  3. GLIPIZIDE [Concomitant]
  4. FELODIPINE [Concomitant]
  5. BISOPROLOL (BISOPROLOL) [Concomitant]
  6. DIGOXIN [Concomitant]
  7. WARFARIN SODIUM [Concomitant]
  8. LISINOPRIL [Concomitant]
  9. CO-CODAMOL (PANADEINE CO) [Concomitant]

REACTIONS (5)
  - GINGIVAL BLEEDING [None]
  - MELAENA [None]
  - MUCOSAL INFLAMMATION [None]
  - PANCYTOPENIA [None]
  - SEPSIS [None]
